FAERS Safety Report 22399961 (Version 1)
Quarter: 2023Q2

REPORT INFORMATION
  Report Type: Spontaneous
  Country: GB (occurrence: GB)
  Receive Date: 20230602
  Receipt Date: 20230602
  Transmission Date: 20230722
  Serious: Yes (Other)
  Sender: FDA-Public Use
  Company Number: GB-VERTEX PHARMACEUTICALS-2023-007810

PATIENT
  Sex: Female

DRUGS (3)
  1. ELEXACAFTOR\IVACAFTOR\TEZACAFTOR [Suspect]
     Active Substance: ELEXACAFTOR\IVACAFTOR\TEZACAFTOR
     Indication: Cystic fibrosis
     Dosage: 75MG IVACAFTOR/ 50MG TEZACAFTOR/ 100MG ELEXACAFTOR, 2 TABLETS IN AM
     Route: 048
     Dates: start: 2020
  2. KALYDECO [Suspect]
     Active Substance: IVACAFTOR
     Indication: Cystic fibrosis
     Dosage: 1 TABLET IN THE EVENING
     Route: 048
     Dates: start: 2020
  3. MORPHINE [Concomitant]
     Active Substance: MORPHINE

REACTIONS (6)
  - Rib fracture [Not Recovered/Not Resolved]
  - Road traffic accident [Recovered/Resolved]
  - Joint injury [Not Recovered/Not Resolved]
  - Skeletal injury [Not Recovered/Not Resolved]
  - Contusion [Not Recovered/Not Resolved]
  - Dyspnoea [Not Recovered/Not Resolved]
